FAERS Safety Report 7056057-5 (Version None)
Quarter: 2010Q4

REPORT INFORMATION
  Report Type: 
  Country: None (occurrence: None)
  Receive Date: 20101021
  Receipt Date: 20101021
  Transmission Date: 20110411
  Serious: Yes (Other)
  Sender: FDA-Public Use
  Company Number: D0069140A

PATIENT
  Sex: Male
  Weight: 80 kg

DRUGS (11)
  1. VOTRIENT [Suspect]
     Indication: RENAL CELL CARCINOMA
     Dosage: 400MG TWICE PER DAY
     Route: 048
     Dates: start: 20101006
  2. NOVAMINSULFON-RATIOPHARM [Concomitant]
     Dosage: 30DROP THREE TIMES PER DAY
     Route: 048
     Dates: start: 20090901
  3. PANTOPRAZOLE SODIUM [Concomitant]
     Dosage: 40MG PER DAY
     Route: 048
     Dates: start: 20090901
  4. MCP [Concomitant]
     Dosage: 30DROP THREE TIMES PER DAY
     Route: 048
     Dates: start: 20091001
  5. LYRICA [Concomitant]
     Dosage: 75MG TWICE PER DAY
     Route: 048
     Dates: start: 20100401
  6. TAMSULOSIN [Concomitant]
     Dosage: .4MG PER DAY
     Route: 048
  7. OPIPRAMOL [Concomitant]
     Dosage: 50MG PER DAY
     Route: 048
  8. DURAGESIC-100 [Concomitant]
     Dosage: 50UGH EVERY 3 DAYS
     Route: 062
  9. FENTANYL [Concomitant]
     Dosage: 400UG AS REQUIRED
     Route: 048
  10. INTERFERON [Concomitant]
     Indication: RENAL CELL CARCINOMA
     Route: 065
  11. BEVACIZUMAB [Concomitant]
     Indication: RENAL CELL CARCINOMA
     Route: 065

REACTIONS (3)
  - DECREASED ACTIVITY [None]
  - FATIGUE [None]
  - GASTROOESOPHAGEAL REFLUX DISEASE [None]
